FAERS Safety Report 11507292 (Version 1)
Quarter: 2015Q3

REPORT INFORMATION
  Report Type: Spontaneous
  Country: US (occurrence: US)
  Receive Date: 20150915
  Receipt Date: 20150915
  Transmission Date: 20151125
  Serious: No
  Sender: FDA-Public Use
  Company Number: US-BANPHARM-20154012

PATIENT
  Age: 35 Year
  Sex: Female
  Weight: 70.31 kg

DRUGS (12)
  1. QVAR INHALER [Concomitant]
  2. ALBUTEROL INHALER [Concomitant]
     Active Substance: ALBUTEROL
  3. ZYRTEC [Suspect]
     Active Substance: CETIRIZINE HYDROCHLORIDE
     Indication: HYPERSENSITIVITY
     Dosage: 2 DF, QD,
     Route: 048
  4. LACHESIS MUTUS [Concomitant]
     Active Substance: LACHESIS MUTA VENOM
  5. ALBUTEROL LIQUID [Concomitant]
  6. PANAX GINSENG [Concomitant]
     Active Substance: ASIAN GINSENG
  7. BENADRYL [Concomitant]
     Active Substance: DIPHENHYDRAMINE HYDROCHLORIDE
  8. CORTISONE [Concomitant]
     Active Substance: CORTISONE\HYDROCORTISONE
  9. PROBIOTIC [Concomitant]
     Active Substance: PROBIOTICS NOS
  10. LORAZEPAM. [Concomitant]
     Active Substance: LORAZEPAM
  11. BUSPAR [Concomitant]
     Active Substance: BUSPIRONE HYDROCHLORIDE
  12. PREDNISONE. [Concomitant]
     Active Substance: PREDNISONE

REACTIONS (2)
  - Incorrect dose administered [Unknown]
  - Drug effect incomplete [Unknown]
